FAERS Safety Report 5876660-5 (Version None)
Quarter: 2008Q3

REPORT INFORMATION
  Report Type: 
  Country: None (occurrence: None)
  Receive Date: 20080910
  Receipt Date: 20080908
  Transmission Date: 20090109
  Serious: Yes (Death)
  Sender: FDA-Public Use
  Company Number: HU-ABBOTT-08P-076-0472678-00

PATIENT
  Sex: Male

DRUGS (2)
  1. LEUPROLIDE ACETATE [Suspect]
     Indication: PROSTATE CANCER
     Route: 058
     Dates: start: 20061212, end: 20080311
  2. ANTI ANDROGEN [Concomitant]
     Indication: PROSTATE CANCER

REACTIONS (1)
  - ANEURYSM RUPTURED [None]
